FAERS Safety Report 22374837 (Version 1)
Quarter: 2023Q2

REPORT INFORMATION
  Report Type: Spontaneous
  Country: US (occurrence: US)
  Receive Date: 20230527
  Receipt Date: 20230527
  Transmission Date: 20230722
  Serious: Yes (Other)
  Sender: FDA-Public Use
  Company Number: US-JAZZ PHARMACEUTICALS-2023-US-005784

PATIENT
  Age: 71 Year
  Sex: Female

DRUGS (2)
  1. XYREM [Suspect]
     Active Substance: SODIUM OXYBATE
     Indication: Cataplexy
     Dosage: UNK
  2. XYREM [Suspect]
     Active Substance: SODIUM OXYBATE
     Indication: Narcolepsy

REACTIONS (24)
  - Alcohol poisoning [Unknown]
  - Poisoning [Unknown]
  - Head injury [Unknown]
  - Confusional state [Unknown]
  - Aggression [Not Recovered/Not Resolved]
  - Dizziness [Unknown]
  - Fall [Unknown]
  - Neurosis [Unknown]
  - Delusion [Unknown]
  - Abnormal behaviour [Unknown]
  - Depression [Unknown]
  - Hypopnoea [Unknown]
  - Cognitive disorder [Unknown]
  - Agitation [Not Recovered/Not Resolved]
  - Hunger [Not Recovered/Not Resolved]
  - Anger [Not Recovered/Not Resolved]
  - Logorrhoea [Unknown]
  - Narcissistic personality disorder [Unknown]
  - Obsessive thoughts [Unknown]
  - Decreased appetite [Unknown]
  - Eating disorder [Unknown]
  - Obsessive-compulsive disorder [Unknown]
  - Anxiety [Unknown]
  - Product communication issue [Unknown]

NARRATIVE: CASE EVENT DATE: 20230509
